FAERS Safety Report 10876588 (Version 1)
Quarter: 2015Q1

REPORT INFORMATION
  Report Type: Spontaneous
  Country: PL (occurrence: PL)
  Receive Date: 20150301
  Receipt Date: 20150301
  Transmission Date: 20150721
  Serious: Yes (Death)
  Sender: FDA-Public Use
  Company Number: PHHY2015PL022658

PATIENT
  Age: 76 Year
  Sex: Male

DRUGS (8)
  1. IMATINIB [Suspect]
     Active Substance: IMATINIB
     Indication: CHRONIC MYELOID LEUKAEMIA
     Dosage: UNK
     Route: 065
     Dates: start: 201101, end: 201201
  2. HYDROXYCARBAMIDE [Suspect]
     Active Substance: HYDROXYUREA
     Indication: CHRONIC MYELOID LEUKAEMIA
     Dosage: 3 G, QD
     Route: 065
     Dates: start: 201002
  3. INTERFERON [Suspect]
     Active Substance: INTERFERON
     Indication: CLEAR CELL RENAL CELL CARCINOMA
     Dosage: UNK
     Route: 065
     Dates: start: 200507
  4. SUNITINIB [Suspect]
     Active Substance: SUNITINIB
     Dosage: 25 MG, UNK
     Dates: start: 201208
  5. SUNITINIB [Suspect]
     Active Substance: SUNITINIB
     Dosage: 12.5 MG, UNK
  6. SUNITINIB [Suspect]
     Active Substance: SUNITINIB
     Indication: CLEAR CELL RENAL CELL CARCINOMA
     Dosage: UNK
     Route: 065
     Dates: start: 200512
  7. SUNITINIB [Suspect]
     Active Substance: SUNITINIB
     Dosage: 37.5 MG, UNK
     Route: 065
     Dates: start: 201102, end: 201206
  8. DASATINIB [Suspect]
     Active Substance: DASATINIB
     Indication: CLEAR CELL RENAL CELL CARCINOMA
     Dosage: UNK
     Dates: start: 201203, end: 201206

REACTIONS (3)
  - Malignant neoplasm progression [Fatal]
  - Clear cell renal cell carcinoma [Fatal]
  - Therapeutic response decreased [Unknown]

NARRATIVE: CASE EVENT DATE: 201212
